FAERS Safety Report 6370027-1 (Version None)
Quarter: 2009Q3

REPORT INFORMATION
  Report Type: 
  Country: None (occurrence: None)
  Receive Date: 20090923
  Receipt Date: 20090604
  Transmission Date: 20100115
  Serious: Yes (Other)
  Sender: FDA-Public Use
  Company Number: US-ASTRAZENECA-2006UW07010

PATIENT
  Age: 560 Month
  Sex: Male
  Weight: 78.9 kg

DRUGS (8)
  1. SEROQUEL [Suspect]
     Indication: SCHIZOPHRENIA
     Route: 048
     Dates: start: 20010501
  2. SEROQUEL [Suspect]
     Dosage: 150 MG, 800 MG, 1200 MG (FLUCTUATING)
     Route: 048
     Dates: start: 20010425, end: 20021013
  3. RISPERDAL [Suspect]
     Dates: start: 20000101
  4. RISPERDAL [Suspect]
     Dates: start: 20010711
  5. CLOZARIL [Concomitant]
     Dates: start: 19850101
  6. HALDOL [Concomitant]
     Dates: start: 20000101, end: 20010101
  7. THORAZINE [Concomitant]
     Dates: start: 20050101
  8. GEODON [Concomitant]

REACTIONS (3)
  - DIABETIC KETOACIDOSIS [None]
  - TYPE 2 DIABETES MELLITUS [None]
  - WEIGHT INCREASED [None]
